FAERS Safety Report 20258338 (Version 2)
Quarter: 2022Q2

REPORT INFORMATION
  Report Type: Spontaneous
  Country: US (occurrence: US)
  Receive Date: 20211230
  Receipt Date: 20220607
  Transmission Date: 20220721
  Serious: Yes (Life-Threatening, Hospitalization)
  Sender: FDA-Public Use
  Company Number: US-SABAL THERAPEUTICS LLC-2021-ATH-000011

PATIENT
  Age: 53 Year
  Sex: Female

DRUGS (9)
  1. OZOBAX [Suspect]
     Active Substance: BACLOFEN
     Indication: Product used for unknown indication
     Dosage: 40 MG, QID
     Route: 048
  2. OZOBAX [Suspect]
     Active Substance: BACLOFEN
     Dosage: ON DAY 4 OF HOSPITALISATION, 20 MG, TID
     Route: 048
  3. OZOBAX [Suspect]
     Active Substance: BACLOFEN
     Dosage: DAY 5, 40 MG, TID (75% OF HER HOME DOSE)
     Route: 048
  4. AMITRIPTYLINE [Concomitant]
     Active Substance: AMITRIPTYLINE
     Indication: Product used for unknown indication
     Dosage: 100 MG, QD
     Route: 048
  5. PREGABALIN [Concomitant]
     Active Substance: PREGABALIN
     Indication: Product used for unknown indication
     Dosage: 300 MG, TID
     Route: 048
  6. VANCOMYCIN [Concomitant]
     Active Substance: VANCOMYCIN
     Indication: Evidence based treatment
     Dosage: UNK
  7. METRONIDAZOLE [Concomitant]
     Active Substance: METRONIDAZOLE
     Indication: Evidence based treatment
  8. CEFEPIME [Concomitant]
     Active Substance: CEFEPIME HYDROCHLORIDE
     Indication: Evidence based treatment
  9. NOREPINEPHRINE [Concomitant]
     Active Substance: NOREPINEPHRINE
     Indication: Blood pressure decreased
     Dosage: 0.4-0.6 ?G/KG/MIN
     Route: 041

REACTIONS (2)
  - Hyperthermia [Recovered/Resolved]
  - Withdrawal syndrome [Recovered/Resolved]
